FAERS Safety Report 8854929 (Version 1)
Quarter: 2012Q4

REPORT INFORMATION
  Report Type: Report from Study
  Country: CA (occurrence: CA)
  Receive Date: 20121023
  Receipt Date: 20121023
  Transmission Date: 20130627
  Serious: Yes (Other)
  Sender: FDA-Public Use
  Company Number: CA-JNJFOC-20121007391

PATIENT
  Sex: Female
  Weight: 80 kg

DRUGS (6)
  1. REMICADE [Suspect]
     Indication: CROHN^S DISEASE
     Route: 042
     Dates: start: 20031104
  2. IMURAN [Concomitant]
     Route: 065
  3. MONOPRIL [Concomitant]
     Route: 065
  4. LIPITOR [Concomitant]
     Route: 065
  5. AERIUS [Concomitant]
     Indication: PREMEDICATION
     Route: 048
  6. SOLU CORTEF [Concomitant]
     Indication: PREMEDICATION
     Route: 042

REACTIONS (1)
  - Iritis [Recovering/Resolving]
